FAERS Safety Report 15730872 (Version 4)
Quarter: 2019Q4

REPORT INFORMATION
  Report Type: Spontaneous
  Country: US (occurrence: US)
  Receive Date: 20181217
  Receipt Date: 20191018
  Transmission Date: 20200122
  Serious: Yes (Other)
  Sender: FDA-Public Use
  Company Number: US-PFIZER INC-2018292059

PATIENT
  Age: 10 Year
  Sex: Male

DRUGS (5)
  1. GENOTROPIN [Suspect]
     Active Substance: SOMATROPIN
     Dosage: 1.2 MG, ALTERNATE DAY (1MG ALTERNATIVE WITH 1.2MG, 7 DAYS A WEEK)
  2. GENOTROPIN [Suspect]
     Active Substance: SOMATROPIN
     Dosage: 1 MG, ALTERNATE DAY
  3. GENOTROPIN [Suspect]
     Active Substance: SOMATROPIN
     Dosage: 1.2 MG, ALTERNATE DAY (1.1MG ALTERNATIVE WITH 1.2MG, 7 DAYS A WEEK)
     Dates: start: 20180716
  4. GENOTROPIN [Suspect]
     Active Substance: SOMATROPIN
     Dosage: 1.1 MG, ALTERNATE DAY (1.1 MG ALTERNATIVE WITH 1.2MG, 7 DAYS A WEEK)
     Dates: start: 20180716
  5. GENOTROPIN [Suspect]
     Active Substance: SOMATROPIN
     Dosage: 1.4 MG, DAILY
     Dates: start: 20180808

REACTIONS (5)
  - Hypoxia [Unknown]
  - Apnoea [Unknown]
  - Product prescribing error [Unknown]
  - Jaw disorder [Unknown]
  - Snoring [Unknown]

NARRATIVE: CASE EVENT DATE: 201709
